FAERS Safety Report 24659849 (Version 1)
Quarter: 2024Q4

REPORT INFORMATION
  Report Type: Spontaneous
  Country: US (occurrence: None)
  Receive Date: 20241125
  Receipt Date: 20241125
  Transmission Date: 20250114
  Serious: Yes (Other)
  Sender: Public
  Company Number: None

PATIENT
  Age: 71 Year
  Sex: Female
  Weight: 115.2 kg

DRUGS (1)
  1. RESMETIROM [Suspect]
     Active Substance: RESMETIROM
     Indication: Metabolic dysfunction-associated steatohepatitis
     Dosage: 100 MG/1 TABLET  DAILY ORAL? ?
     Route: 048
     Dates: start: 20241006, end: 20241016

REACTIONS (6)
  - Rash [None]
  - Peripheral swelling [None]
  - Peripheral swelling [None]
  - Dry skin [None]
  - Sensitive skin [None]
  - Joint swelling [None]

NARRATIVE: CASE EVENT DATE: 20241016
